FAERS Safety Report 16463013 (Version 1)
Quarter: 2019Q2

REPORT INFORMATION
  Report Type: Spontaneous
  Country: IT (occurrence: IT)
  Receive Date: 20190621
  Receipt Date: 20190621
  Transmission Date: 20190711
  Serious: Yes (Death)
  Sender: FDA-Public Use
  Company Number: IT-SA-2019SA169230

PATIENT
  Age: 39 Year
  Sex: Female

DRUGS (1)
  1. ALEMTUZUMAB [Suspect]
     Active Substance: ALEMTUZUMAB
     Indication: MULTIPLE SCLEROSIS
     Route: 042

REACTIONS (4)
  - Chest pain [Fatal]
  - Nausea [Fatal]
  - Pyrexia [Fatal]
  - Vomiting [Fatal]

NARRATIVE: CASE EVENT DATE: 20190515
